FAERS Safety Report 9252131 (Version 3)
Quarter: 2013Q2

REPORT INFORMATION
  Report Type: Spontaneous
  Country: JP (occurrence: JP)
  Receive Date: 20130424
  Receipt Date: 20130513
  Transmission Date: 20140414
  Serious: Yes (Other)
  Sender: FDA-Public Use
  Company Number: JP-PFIZER INC-2013125071

PATIENT
  Age: 45 Year
  Sex: Male

DRUGS (3)
  1. OXALIPLATIN [Suspect]
     Indication: COLON CANCER STAGE III
     Dosage: 12 COURSES
     Dates: start: 201103
  2. FLUOROURACIL [Suspect]
     Indication: COLON CANCER STAGE III
     Dosage: 12 COURSES
     Dates: start: 201103
  3. CALCIUM FOLINATE [Suspect]
     Indication: COLON CANCER STAGE III
     Dosage: 12 COURSES
     Dates: start: 201103

REACTIONS (1)
  - Liver injury [Unknown]
